FAERS Safety Report 25108396 (Version 1)
Quarter: 2025Q1

REPORT INFORMATION
  Report Type: Spontaneous
  Country: CN (occurrence: CN)
  Receive Date: 20250322
  Receipt Date: 20250322
  Transmission Date: 20250409
  Serious: Yes (Other)
  Sender: ABBVIE
  Company Number: CN-ABBVIE-6189688

PATIENT
  Age: 59 Year
  Sex: Female
  Weight: 51 kg

DRUGS (1)
  1. VENETOCLAX [Suspect]
     Active Substance: VENETOCLAX
     Indication: Symptomatic treatment
     Dosage: 400 MILLIGRAM
     Route: 048
     Dates: start: 20241109, end: 20250304

REACTIONS (1)
  - Granulocyte count decreased [Recovering/Resolving]

NARRATIVE: CASE EVENT DATE: 20241215
